FAERS Safety Report 9603422 (Version 3)
Quarter: 2013Q4

REPORT INFORMATION
  Report Type: Spontaneous
  Country: US (occurrence: US)
  Receive Date: 20131007
  Receipt Date: 20131121
  Transmission Date: 20140711
  Serious: No
  Sender: FDA-Public Use
  Company Number: US-009507513-1310USA001427

PATIENT
  Age: 86 Year
  Sex: Female
  Weight: 57.6 kg

DRUGS (4)
  1. DULERA [Suspect]
     Indication: CHRONIC OBSTRUCTIVE PULMONARY DISEASE
     Dosage: 2 PUFFS, TWICE DAILY
     Route: 055
     Dates: start: 20130904, end: 20131024
  2. DULERA [Suspect]
     Dosage: UNK
  3. SPIRIVA [Concomitant]
     Dosage: UNK
  4. PAROXETINE [Concomitant]
     Dosage: UNK

REACTIONS (3)
  - Glossodynia [Unknown]
  - Oral discomfort [Unknown]
  - Oral pain [Unknown]
